FAERS Safety Report 6793588-7 (Version None)
Quarter: 2010Q2

REPORT INFORMATION
  Report Type: 
  Country: None (occurrence: None)
  Receive Date: 20100624
  Receipt Date: 20090218
  Transmission Date: 20101027
  Serious: No
  Sender: FDA-Public Use
  Company Number: US-PFIZER INC-2008098095

PATIENT
  Sex: Male
  Weight: 99.32 kg

DRUGS (7)
  1. SUTENT [Suspect]
     Indication: RENAL CANCER
     Dosage: X2 WEEKS THEN 2WKS OFF
     Route: 048
     Dates: start: 20081108, end: 20081207
  2. SUTENT [Suspect]
     Indication: METASTASES TO BONE
  3. ZOMETA [Suspect]
     Indication: METASTASES TO BONE
     Dosage: 4 MG, EVERY 6 WEEKS
     Route: 042
     Dates: start: 20080918
  4. OMEPRAZOLE [Concomitant]
  5. METOCLOPRAMIDE [Concomitant]
  6. CALCIUM CARBONATE [Concomitant]
  7. VALSARTAN [Concomitant]
     Indication: HYPERTENSION

REACTIONS (6)
  - BLOOD CALCIUM DECREASED [None]
  - ERYTHEMA [None]
  - GASTRITIS [None]
  - HYPOTENSION [None]
  - MUCOSAL INFLAMMATION [None]
  - ORAL INFECTION [None]
